FAERS Safety Report 10022659 (Version 2)
Quarter: 2014Q1

REPORT INFORMATION
  Report Type: Report from Study
  Country: GB (occurrence: GB)
  Receive Date: 20140319
  Receipt Date: 20140319
  Transmission Date: 20141002
  Serious: Yes (Other)
  Sender: FDA-Public Use
  Company Number: GB-VERTEX PHARMACEUTICALS INC-2014-000923

PATIENT
  Age: 36 Year
  Sex: Male

DRUGS (5)
  1. VX-950 (TELAPREVIR) [Suspect]
     Indication: HEPATITIS C
     Dosage: 750 MG, TID
     Dates: start: 20140110
  2. RIBAVIRIN [Suspect]
     Indication: HEPATITIS C
     Dosage: UNK, BID
     Route: 048
     Dates: start: 20140110
  3. RIBAVIRIN [Suspect]
     Dosage: DOSAGE FORM: TABLETS
     Route: 048
     Dates: start: 20140110
  4. PEG INTERFERON [Suspect]
     Indication: HEPATITIS C
     Dosage: UNK, QW
     Route: 058
     Dates: start: 20140110
  5. PEG INTERFERON [Suspect]
     Dosage: DOSAGE FORM: INJECTION
     Route: 058
     Dates: start: 20140110

REACTIONS (10)
  - Depression [Not Recovered/Not Resolved]
  - Headache [Not Recovered/Not Resolved]
  - Mood swings [Not Recovered/Not Resolved]
  - Epistaxis [Not Recovered/Not Resolved]
  - Weight decreased [Not Recovered/Not Resolved]
  - Decreased appetite [Unknown]
  - Alopecia [Not Recovered/Not Resolved]
  - Pruritus generalised [Not Recovered/Not Resolved]
  - Nausea [Not Recovered/Not Resolved]
  - Diarrhoea [Not Recovered/Not Resolved]
